FAERS Safety Report 6234040-7 (Version None)
Quarter: 2009Q2

REPORT INFORMATION
  Report Type: 
  Country: None (occurrence: None)
  Receive Date: 20090612
  Receipt Date: 20090609
  Transmission Date: 20091009
  Serious: Yes (Other)
  Sender: FDA-Public Use
  Company Number: DE-WYE-G03730909

PATIENT
  Age: 52 Year
  Sex: Female

DRUGS (1)
  1. VENLAFAXINE HCL [Suspect]
     Indication: DEPRESSION
     Dosage: 75 MG 1X PER 1 DAY ORAL
     Route: 048
     Dates: end: 20090201

REACTIONS (4)
  - APLASTIC ANAEMIA [None]
  - BLOOD FOLATE DECREASED [None]
  - DRUG WITHDRAWAL SYNDROME [None]
  - LEUKAEMIA [None]
